FAERS Safety Report 11381820 (Version 3)
Quarter: 2016Q2

REPORT INFORMATION
  Report Type: Spontaneous
  Country: US (occurrence: US)
  Receive Date: 20150814
  Receipt Date: 20160603
  Transmission Date: 20160815
  Serious: Yes (Hospitalization, Other)
  Sender: FDA-Public Use
  Company Number: US-DSJP-DSU-2015-124874

PATIENT
  Age: 57 Year
  Sex: Female
  Weight: 104.31 kg

DRUGS (3)
  1. AZOR [Suspect]
     Active Substance: AMLODIPINE BESYLATE\OLMESARTAN MEDOXOMIL
     Indication: HYPERTENSION
     Dosage: 40/5 MG, 1 TABLET, QAM
     Route: 048
     Dates: start: 20111219, end: 2012
  2. BENICAR [Suspect]
     Active Substance: OLMESARTAN MEDOXOMIL
     Indication: PRODUCT USED FOR UNKNOWN INDICATION
     Dosage: UNK
     Dates: start: 20111219
  3. OMEPRAZOLE. [Concomitant]
     Active Substance: OMEPRAZOLE
     Indication: PRODUCT USED FOR UNKNOWN INDICATION
     Dosage: 20 MG, QD
     Route: 048

REACTIONS (11)
  - Abdominal lymphadenopathy [Unknown]
  - Diverticulum [Unknown]
  - Coeliac disease [Unknown]
  - Malabsorption [Unknown]
  - Gastroenteritis viral [Unknown]
  - Renal failure [Recovering/Resolving]
  - Metabolic acidosis [Unknown]
  - Abdominal distension [Unknown]
  - Dyspepsia [Unknown]
  - Hiatus hernia [Unknown]
  - Decreased appetite [Unknown]

NARRATIVE: CASE EVENT DATE: 201207
